FAERS Safety Report 22258576 (Version 2)
Quarter: 2023Q2

REPORT INFORMATION
  Report Type: Other
  Country: US (occurrence: None)
  Receive Date: 20230427
  Receipt Date: 20230511
  Transmission Date: 20230722
  Serious: Yes (Hospitalization)
  Sender: FDA-Public Use
  Company Number: US-ROCHE-3336242

PATIENT
  Age: 30 Year
  Sex: Female

DRUGS (1)
  1. EVRYSDI [Suspect]
     Active Substance: RISDIPLAM
     Indication: Spinal muscular atrophy
     Route: 048
     Dates: start: 202007

REACTIONS (4)
  - Palpitations [Recovered/Resolved]
  - Ketoacidosis [Unknown]
  - Asthenia [Unknown]
  - Syncope [Unknown]

NARRATIVE: CASE EVENT DATE: 20221001
